FAERS Safety Report 8076071-0 (Version None)
Quarter: 2012Q1

REPORT INFORMATION
  Report Type: 
  Country: None (occurrence: None)
  Receive Date: 20120127
  Receipt Date: 20110707
  Transmission Date: 20120608
  Serious: No
  Sender: FDA-Public Use
  Company Number: US-GLAXOSMITHKLINE-A0936772A

PATIENT
  Age: 64 Year
  Sex: Female

DRUGS (5)
  1. NEBIVOLOL [Suspect]
     Indication: HYPERTENSION
     Dosage: 10MG PER DAY
     Route: 048
     Dates: start: 20091111
  2. NEXIUM [Suspect]
     Indication: PRODUCT USED FOR UNKNOWN INDICATION
  3. MAXZIDE [Suspect]
     Indication: PRODUCT USED FOR UNKNOWN INDICATION
  4. NO CONCURRENT MEDICATION [Concomitant]
  5. WELLBUTRIN [Suspect]
     Indication: PRODUCT USED FOR UNKNOWN INDICATION
     Route: 065

REACTIONS (1)
  - PHOTOSENSITIVITY REACTION [None]
